FAERS Safety Report 21345656 (Version 1)
Quarter: 2022Q3

REPORT INFORMATION
  Report Type: Report from Study
  Country: CN (occurrence: CN)
  Receive Date: 20220916
  Receipt Date: 20220916
  Transmission Date: 20221027
  Serious: Yes (Life-Threatening, Hospitalization)
  Sender: FDA-Public Use
  Company Number: CN-NOVARTISPH-NVSC2019CN106243

PATIENT
  Age: 61 Year
  Sex: Male

DRUGS (8)
  1. PLACEBO [Suspect]
     Active Substance: UNSPECIFIED INGREDIENT
     Indication: Adenocarcinoma gastric
     Dosage: 200 MG, Q3W
     Route: 042
     Dates: start: 20190516, end: 20190529
  2. CAPECITABINE [Suspect]
     Active Substance: CAPECITABINE
     Indication: Adenocarcinoma gastric
     Dosage: 3500 MG, Q3W
     Route: 048
     Dates: start: 20190516, end: 20190529
  3. POTASSIUM CHLORIDE [Concomitant]
     Active Substance: POTASSIUM CHLORIDE
     Indication: Hypokalaemia
     Dosage: UNK
     Route: 042
     Dates: start: 20190509, end: 20190608
  4. METOCLOPRAMIDE [Concomitant]
     Active Substance: METOCLOPRAMIDE
     Indication: Constipation
     Dosage: UNK
     Route: 042
     Dates: start: 20190522, end: 20190609
  5. TEPRENONA [Concomitant]
     Indication: Eructation
     Dosage: UNK
     Route: 065
     Dates: start: 20190522
  6. MEGESTROL [Concomitant]
     Active Substance: MEGESTROL
     Indication: Decreased appetite
     Dosage: UNK
     Route: 048
     Dates: start: 20190522, end: 20190605
  7. VITAMIN B6 [Concomitant]
     Active Substance: PYRIDOXINE HYDROCHLORIDE
     Indication: Decreased appetite
     Dosage: UNK
     Route: 042
     Dates: start: 20190520, end: 20190609
  8. VITAMIN C [Concomitant]
     Active Substance: ASCORBIC ACID
     Indication: Decreased appetite
     Dosage: UNK
     Route: 042
     Dates: start: 20190520, end: 20190609

REACTIONS (2)
  - Platelet count decreased [Recovered/Resolved]
  - Neutrophil count decreased [Recovered/Resolved]

NARRATIVE: CASE EVENT DATE: 20190531
